FAERS Safety Report 24869638 (Version 1)
Quarter: 2025Q1

REPORT INFORMATION
  Report Type: Other
  Country: KR (occurrence: KR)
  Receive Date: 20250121
  Receipt Date: 20250121
  Transmission Date: 20250409
  Serious: Yes (Hospitalization, Disabling)
  Sender: B BRAUN
  Company Number: KR-B.Braun Medical Inc.-2169484

PATIENT
  Age: 61 Year
  Sex: Male

DRUGS (2)
  1. SODIUM CHLORIDE [Suspect]
     Active Substance: SODIUM CHLORIDE
     Indication: Hyponatraemia
  2. HYDROCHLOROTHIAZIDE [Concomitant]
     Active Substance: HYDROCHLOROTHIAZIDE

REACTIONS (1)
  - Osmotic demyelination syndrome [Not Recovered/Not Resolved]
